FAERS Safety Report 11368772 (Version 1)
Quarter: 2015Q3

REPORT INFORMATION
  Report Type: Spontaneous
  Country: GB (occurrence: GB)
  Receive Date: 20150812
  Receipt Date: 20150812
  Transmission Date: 20151125
  Serious: Yes (Hospitalization)
  Sender: FDA-Public Use
  Company Number: GB-RECORDATI RARE DISEASES-GB-R13005-15-00120

PATIENT
  Age: 4 Year
  Sex: Male

DRUGS (2)
  1. IBUPROFEN. [Suspect]
     Active Substance: IBUPROFEN
     Indication: PRODUCT USED FOR UNKNOWN INDICATION
     Route: 065
  2. PARACETAMOL [Suspect]
     Active Substance: ACETAMINOPHEN
     Indication: PRODUCT USED FOR UNKNOWN INDICATION
     Route: 065

REACTIONS (6)
  - Periorbital oedema [Unknown]
  - Rhinitis [Unknown]
  - Cough [Unknown]
  - Lip swelling [Unknown]
  - Off label use [Unknown]
  - Wheezing [Unknown]

NARRATIVE: CASE EVENT DATE: 20150609
